FAERS Safety Report 4457351-4 (Version None)
Quarter: 2004Q3

REPORT INFORMATION
  Report Type: 
  Country: None (occurrence: None)
  Receive Date: 20040922
  Receipt Date: 20040913
  Transmission Date: 20050211
  Serious: Yes (Death, Other)
  Sender: FDA-Public Use
  Company Number: US-JNJFOC-20040903660

PATIENT
  Age: 43 Year
  Sex: Female

DRUGS (1)
  1. ACETAMINOPHEN/DIPHENHYDRAMINE (ACETAMINOPHEN/DIPHENHYDRAMINE HCL) [Suspect]
     Indication: SUICIDE ATTEMPT
     Dosage: APPROXIMATELY 36

REACTIONS (17)
  - ACIDOSIS [None]
  - ANTICHOLINERGIC SYNDROME [None]
  - BLOOD PRESSURE SYSTOLIC DECREASED [None]
  - BRAIN OEDEMA [None]
  - DRUG TOXICITY [None]
  - DYSARTHRIA [None]
  - GENERAL PHYSICAL HEALTH DETERIORATION [None]
  - GENERALISED OEDEMA [None]
  - HEART RATE INCREASED [None]
  - HEPATIC NECROSIS [None]
  - HEPATORENAL FAILURE [None]
  - LETHARGY [None]
  - MULTIPLE DRUG OVERDOSE [None]
  - NAUSEA [None]
  - PULMONARY OEDEMA [None]
  - RENAL FAILURE [None]
  - VOMITING [None]
